FAERS Safety Report 4778896-3 (Version None)
Quarter: 2005Q3

REPORT INFORMATION
  Report Type: 
  Country: None (occurrence: None)
  Receive Date: 20050922
  Receipt Date: 20050914
  Transmission Date: 20060218
  Serious: Yes (Other)
  Sender: FDA-Public Use
  Company Number: 12369

PATIENT
  Age: 34 Year
  Sex: Female

DRUGS (1)
  1. FAMOTIDINE [Suspect]
     Dosage: 20 MG PO
     Route: 048

REACTIONS (2)
  - DELIRIUM [None]
  - MENTAL STATUS CHANGES [None]
